FAERS Safety Report 11751949 (Version 9)
Quarter: 2019Q3

REPORT INFORMATION
  Report Type: Spontaneous
  Country: US (occurrence: US)
  Receive Date: 20151118
  Receipt Date: 20190912
  Transmission Date: 20191004
  Serious: Yes (Hospitalization, Other)
  Sender: FDA-Public Use
  Company Number: US-DSJP-DSU-2015-118402

PATIENT

DRUGS (5)
  1. LASIX [Concomitant]
     Active Substance: FUROSEMIDE
     Indication: PRODUCT USED FOR UNKNOWN INDICATION
     Dosage: 20 MG, PRN
     Dates: start: 201311
  2. BENICAR [Suspect]
     Active Substance: OLMESARTAN MEDOXOMIL
     Dosage: 20 MG, QD
     Dates: start: 20080318, end: 201407
  3. PROTONIX [Concomitant]
     Active Substance: PANTOPRAZOLE SODIUM
     Indication: PRODUCT USED FOR UNKNOWN INDICATION
     Dosage: 40 MG, BID
  4. BENICAR [Suspect]
     Active Substance: OLMESARTAN MEDOXOMIL
     Indication: HYPERTENSION
     Dosage: 10 MG, UNK
  5. ASPIRIN. [Concomitant]
     Active Substance: ASPIRIN
     Indication: PRODUCT USED FOR UNKNOWN INDICATION
     Dosage: 81 MG, QD

REACTIONS (18)
  - Hypotension [Recovered/Resolved]
  - Pain [Unknown]
  - Sprue-like enteropathy [Recovering/Resolving]
  - Hepatic function abnormal [Recovered/Resolved]
  - Intestinal perforation [Recovered/Resolved]
  - Hiatus hernia [Not Recovered/Not Resolved]
  - Metatarsalgia [Unknown]
  - Polyp [Unknown]
  - Pneumatosis intestinalis [Unknown]
  - Sensory loss [Unknown]
  - Haemorrhoids [Recovering/Resolving]
  - Gastrooesophageal reflux disease [Not Recovered/Not Resolved]
  - Diverticulum [Recovered/Resolved]
  - Myopathy [Not Recovered/Not Resolved]
  - Fall [Not Recovered/Not Resolved]
  - Normocytic anaemia [Recovering/Resolving]
  - Erosive oesophagitis [Unknown]
  - Coeliac disease [Recovered/Resolved]

NARRATIVE: CASE EVENT DATE: 20100527
